FAERS Safety Report 4354491-5 (Version None)
Quarter: 2004Q2

REPORT INFORMATION
  Report Type: 
  Country: None (occurrence: None)
  Receive Date: 20040503
  Receipt Date: 20040422
  Transmission Date: 20050107
  Serious: Yes (Hospitalization)
  Sender: FDA-Public Use
  Company Number: US-JNJFOC-20040204054

PATIENT
  Age: 76 Year
  Sex: Male

DRUGS (7)
  1. DURAGESIC [Suspect]
     Indication: DRUG USE FOR UNKNOWN INDICATION
     Dosage: SEE IMAGE
     Route: 062
     Dates: start: 20030101, end: 20040213
  2. DURAGESIC [Suspect]
     Indication: DRUG USE FOR UNKNOWN INDICATION
     Dosage: SEE IMAGE
     Route: 062
     Dates: start: 20040214
  3. ELAVIL [Suspect]
     Indication: DRUG USE FOR UNKNOWN INDICATION
     Dates: end: 20040213
  4. ACEBUTOLOL [Concomitant]
  5. RANITIDINE [Concomitant]
  6. ASPIRIN [Concomitant]
  7. NITROGLYCERIN [Concomitant]

REACTIONS (7)
  - DEHYDRATION [None]
  - DRUG HYPERSENSITIVITY [None]
  - DYSARTHRIA [None]
  - LETHARGY [None]
  - MENTAL STATUS CHANGES [None]
  - RESPIRATION ABNORMAL [None]
  - SEDATION [None]
